FAERS Safety Report 5587794-7 (Version None)
Quarter: 2007Q4

REPORT INFORMATION
  Report Type: 
  Country: None (occurrence: None)
  Receive Date: 20071205
  Receipt Date: 20060909
  Transmission Date: 20080405
  Serious: Yes (Other)
  Sender: FDA-Public Use
  Company Number: E3810-00237-SPO-US

PATIENT
  Age: 78 Year
  Sex: Female

DRUGS (4)
  1. ACIPHEX [Suspect]
     Dosage: 20 MG, ORAL ; ORAL
     Route: 047
  2. DYAZIDE [Concomitant]
  3. NORPACE [Concomitant]
  4. MULTIVITAMIN [Concomitant]

REACTIONS (1)
  - NEPHRITIS INTERSTITIAL [None]
